APPROVED DRUG PRODUCT: CEPHALEXIN
Active Ingredient: CEPHALEXIN
Strength: EQ 500MG BASE
Dosage Form/Route: CAPSULE;ORAL
Application: A065215 | Product #002
Applicant: HIKMA PHARMACEUTICALS
Approved: Jan 24, 2006 | RLD: No | RS: No | Type: DISCN